FAERS Safety Report 14141476 (Version 1)
Quarter: 2017Q4

REPORT INFORMATION
  Report Type: Spontaneous
  Country: RU (occurrence: RU)
  Receive Date: 20171030
  Receipt Date: 20171030
  Transmission Date: 20180321
  Serious: Yes (Other)
  Sender: FDA-Public Use
  Company Number: RU-PFIZER INC-2017406402

PATIENT
  Age: 30 Year
  Sex: Male

DRUGS (2)
  1. DOSTINEX [Suspect]
     Active Substance: CABERGOLINE
     Indication: PROLACTIN-PRODUCING PITUITARY TUMOUR
     Dosage: 0.25 MG (1/2 OF 0.5 MG TABLET), 2X/WEEK
     Route: 048
     Dates: start: 201707
  2. DOSTINEX [Suspect]
     Active Substance: CABERGOLINE
     Dosage: 0.125 MG, WEEKLY
     Route: 048

REACTIONS (3)
  - Hormone level abnormal [Recovered/Resolved]
  - Blood testosterone decreased [Recovered/Resolved]
  - Libido decreased [Recovered/Resolved]

NARRATIVE: CASE EVENT DATE: 201708
